FAERS Safety Report 17365977 (Version 2)
Quarter: 2020Q1

REPORT INFORMATION
  Report Type: Spontaneous
  Country: DE (occurrence: DE)
  Receive Date: 20200204
  Receipt Date: 20200228
  Transmission Date: 20200409
  Serious: Yes (Other)
  Sender: FDA-Public Use
  Company Number: DE-VERTEX PHARMACEUTICALS-2020-001808

PATIENT
  Age: 5 Year
  Sex: Female

DRUGS (5)
  1. URSODEOXYCHOLIC ACID [Concomitant]
     Active Substance: URSODIOL
  2. PULMOZYME [Concomitant]
     Active Substance: DORNASE ALFA
  3. CEFALEXIN [Concomitant]
     Active Substance: CEPHALEXIN
  4. COLISTIN [Concomitant]
     Active Substance: COLISTIN
  5. ORKAMBI [Suspect]
     Active Substance: IVACAFTOR\LUMACAFTOR
     Indication: CYSTIC FIBROSIS
     Dosage: 150/188MG EVERY 12 HOURS
     Route: 048
     Dates: start: 201909

REACTIONS (1)
  - Immune thrombocytopenic purpura [Recovered/Resolved]

NARRATIVE: CASE EVENT DATE: 20200124
